FAERS Safety Report 15085208 (Version 1)
Quarter: 2018Q2

REPORT INFORMATION
  Report Type: Spontaneous
  Country: US (occurrence: US)
  Receive Date: 20180628
  Receipt Date: 20180628
  Transmission Date: 20180711
  Serious: No
  Sender: FDA-Public Use
  Company Number: US-GE HEALTHCARE LIFE SCIENCES-2018CSU002426

PATIENT
  Age: 55 Year
  Sex: Male
  Weight: 83.9 kg

DRUGS (2)
  1. OMNISCAN [Suspect]
     Active Substance: GADODIAMIDE
     Indication: PRODUCT USED FOR UNKNOWN INDICATION
     Dosage: 20 ML, SINGLE
     Route: 042
     Dates: start: 20160907, end: 20160907
  2. OMNISCAN [Suspect]
     Active Substance: GADODIAMIDE
     Dosage: 20 ML, SINGLE
     Route: 042
     Dates: start: 20170125, end: 20170125

REACTIONS (3)
  - Prostatomegaly [Not Recovered/Not Resolved]
  - Arthralgia [Not Recovered/Not Resolved]
  - Bladder hypertrophy [Not Recovered/Not Resolved]

NARRATIVE: CASE EVENT DATE: 201610
